FAERS Safety Report 24140566 (Version 1)
Quarter: 2024Q3

REPORT INFORMATION
  Report Type: Spontaneous
  Country: US (occurrence: US)
  Receive Date: 20240726
  Receipt Date: 20240726
  Transmission Date: 20241016
  Serious: Yes (Other)
  Sender: BRISTOL MYERS SQUIBB
  Company Number: US-BRISTOL-MYERS SQUIBB COMPANY-2024-116425

PATIENT
  Age: 81 Year
  Sex: Male
  Weight: 39.01 kg

DRUGS (1)
  1. POMALYST [Suspect]
     Active Substance: POMALIDOMIDE
     Indication: Plasma cell myeloma
     Dosage: 1 CAPSULE BY MOUTH ONCE DAILY ON DAYS 1-21 OF A 28 DAY CYCLE
     Route: 048

REACTIONS (1)
  - Red blood cell count decreased [Recovering/Resolving]
